FAERS Safety Report 10891672 (Version 3)
Quarter: 2015Q2

REPORT INFORMATION
  Report Type: Report from Study
  Country: CO (occurrence: CO)
  Receive Date: 20150306
  Receipt Date: 20150427
  Transmission Date: 20150821
  Serious: Yes (Death, Other)
  Sender: FDA-Public Use
  Company Number: PHHY2015CO026366

PATIENT
  Age: 71 Year
  Sex: Female

DRUGS (1)
  1. AFINITOR [Suspect]
     Active Substance: EVEROLIMUS
     Indication: PRODUCT USED FOR UNKNOWN INDICATION
     Route: 065

REACTIONS (5)
  - Metastases to liver [Unknown]
  - Breast cancer [Unknown]
  - General physical health deterioration [Unknown]
  - Dysstasia [Unknown]
  - Death [Fatal]

NARRATIVE: CASE EVENT DATE: 20150328
